FAERS Safety Report 6265015-X (Version None)
Quarter: 2009Q3

REPORT INFORMATION
  Report Type: 
  Country: None (occurrence: None)
  Receive Date: 20090708
  Receipt Date: 20090626
  Transmission Date: 20100115
  Serious: Yes (Hospitalization)
  Sender: FDA-Public Use
  Company Number: PAR_03068_2009

PATIENT
  Sex: Female

DRUGS (2)
  1. CAPOTEN [Suspect]
     Indication: HYPERTENSION
     Dosage: (50 MG 1X ORAL)
     Route: 048
     Dates: start: 20090615, end: 20090615
  2. NIFEDIPINE [Concomitant]

REACTIONS (2)
  - ERYTHEMA [None]
  - LOCALISED OEDEMA [None]
